FAERS Safety Report 6883466-7 (Version None)
Quarter: 2010Q3

REPORT INFORMATION
  Report Type: 
  Country: None (occurrence: None)
  Receive Date: 20100729
  Receipt Date: 20100720
  Transmission Date: 20110219
  Serious: Yes (Hospitalization)
  Sender: FDA-Public Use
  Company Number: GXKR2010IT08114

PATIENT
  Sex: Female

DRUGS (1)
  1. KETOPROFEN (NGX) [Suspect]
     Route: 065

REACTIONS (3)
  - HEPATITIS [None]
  - HYPERTRANSAMINASAEMIA [None]
  - JAUNDICE [None]
